FAERS Safety Report 14182937 (Version 1)
Quarter: 2017Q4

REPORT INFORMATION
  Report Type: Spontaneous
  Country: US (occurrence: US)
  Receive Date: 20171113
  Receipt Date: 20171113
  Transmission Date: 20180321
  Serious: No
  Sender: FDA-Public Use
  Company Number: US-SHIRE-US201723577

PATIENT
  Sex: Female
  Weight: 81.63 kg

DRUGS (2)
  1. VYVANSE [Suspect]
     Active Substance: LISDEXAMFETAMINE DIMESYLATE
     Indication: ATTENTION DEFICIT/HYPERACTIVITY DISORDER
     Dosage: 50 MG, UNK
     Route: 065
  2. VYVANSE [Suspect]
     Active Substance: LISDEXAMFETAMINE DIMESYLATE
     Indication: BIPOLAR DISORDER

REACTIONS (5)
  - Depression [Unknown]
  - Weight increased [Not Recovered/Not Resolved]
  - Product physical issue [Unknown]
  - Joint injury [Not Recovered/Not Resolved]
  - Drug ineffective [Unknown]
